FAERS Safety Report 15800765 (Version 1)
Quarter: 2019Q1

REPORT INFORMATION
  Report Type: Spontaneous
  Country: GB (occurrence: GB)
  Receive Date: 20190109
  Receipt Date: 20190109
  Transmission Date: 20190417
  Serious: Yes (Other)
  Sender: FDA-Public Use
  Company Number: GB-TEVA-2019-GB-996239

PATIENT
  Age: 20 Year
  Sex: Female
  Weight: 61 kg

DRUGS (1)
  1. AMOXICILLIN. [Suspect]
     Active Substance: AMOXICILLIN
     Indication: EAR INFECTION
     Dosage: 500 MG
     Route: 048
     Dates: start: 20181112, end: 20181117

REACTIONS (3)
  - Contusion [Unknown]
  - Maternal exposure during pregnancy [Unknown]
  - Thrombocytopenia [Not Recovered/Not Resolved]

NARRATIVE: CASE EVENT DATE: 20181130
